FAERS Safety Report 10265023 (Version 1)
Quarter: 2014Q2

REPORT INFORMATION
  Report Type: Spontaneous
  Country: US (occurrence: US)
  Receive Date: 20140627
  Receipt Date: 20140627
  Transmission Date: 20141212
  Serious: No
  Sender: FDA-Public Use
  Company Number: US-PFIZER INC-2014176657

PATIENT
  Sex: Female

DRUGS (1)
  1. PREMARIN [Suspect]
     Dosage: 1.25 MG, UNK
     Dates: start: 1993

REACTIONS (3)
  - Hot flush [Unknown]
  - Headache [Unknown]
  - Drug ineffective [Unknown]
